FAERS Safety Report 13575855 (Version 2)
Quarter: 2017Q2

REPORT INFORMATION
  Report Type: Spontaneous
  Country: FR (occurrence: FR)
  Receive Date: 20170524
  Receipt Date: 20170630
  Transmission Date: 20170830
  Serious: Yes (Hospitalization)
  Sender: FDA-Public Use
  Company Number: FR-B.I. PHARMACEUTICALS,INC./RIDGEFIELD-2017-BI-028160

PATIENT
  Age: 49 Year
  Sex: Male

DRUGS (9)
  1. SIFROL [Suspect]
     Active Substance: PRAMIPEXOLE
     Indication: RESTLESS LEGS SYNDROME
     Route: 048
  2. PAROXETINE. [Concomitant]
     Active Substance: PAROXETINE
     Indication: BIPOLAR I DISORDER
     Route: 065
  3. SERESTA [Concomitant]
     Active Substance: OXAZEPAM
     Indication: BIPOLAR I DISORDER
     Route: 065
  4. SIFROL [Suspect]
     Active Substance: PRAMIPEXOLE
     Route: 048
  5. ZYPREXA [Concomitant]
     Active Substance: OLANZAPINE
     Indication: BIPOLAR I DISORDER
     Route: 065
  6. THERCIAN [Concomitant]
     Indication: BIPOLAR I DISORDER
     Route: 065
  7. TERALITHE [Concomitant]
     Active Substance: LITHIUM CARBONATE
     Indication: BIPOLAR I DISORDER
     Route: 065
  8. HAVLANE [Concomitant]
     Active Substance: LOPRAZOLAM
     Indication: BIPOLAR I DISORDER
     Route: 065
  9. ALPRAZOLAM. [Concomitant]
     Active Substance: ALPRAZOLAM
     Indication: BIPOLAR I DISORDER
     Route: 065

REACTIONS (4)
  - Alcoholism [Unknown]
  - Obsessive thoughts [Unknown]
  - Serotonin syndrome [Unknown]
  - Aggression [Unknown]
